FAERS Safety Report 18984344 (Version 1)
Quarter: 2021Q1

REPORT INFORMATION
  Report Type: Other
  Country: FR (occurrence: FR)
  Receive Date: 20210309
  Receipt Date: 20210309
  Transmission Date: 20210420
  Serious: Yes (Other)
  Sender: FDA-Public Use
  Company Number: FR-ROCHE-2779840

PATIENT
  Age: 75 Year
  Sex: Female
  Weight: 56 kg

DRUGS (14)
  1. METFORMINE [Concomitant]
     Active Substance: METFORMIN HYDROCHLORIDE
     Indication: TYPE 2 DIABETES MELLITUS
  2. FUROSEMIDE. [Concomitant]
     Active Substance: FUROSEMIDE
     Indication: OEDEMA PERIPHERAL
     Dates: start: 20201209
  3. INEXIUM [Concomitant]
     Active Substance: ESOMEPRAZOLE
  4. HUMALOG [Concomitant]
     Active Substance: INSULIN LISPRO
     Indication: TYPE 2 DIABETES MELLITUS
  5. SMECTA [Concomitant]
     Active Substance: MONTMORILLONITE
     Indication: COLITIS
     Dates: start: 20201102
  6. SOLUPRED (FRANCE) [Concomitant]
     Active Substance: PREDNISOLONE SODIUM METAZOATE
     Indication: COLITIS
     Dates: start: 20201104
  7. ATEZOLIZUMAB. [Suspect]
     Active Substance: ATEZOLIZUMAB
     Indication: NON-SMALL CELL LUNG CANCER
     Dosage: SUBSEQUENT DOSE RECEIVED ON 18/MAR/2020, 08/APR/2020, 29/APR/2020, 20/MAY/2020, 10/JUN/2020, 01/JUL/
     Route: 041
     Dates: start: 20200226
  8. PERINDOPRIL [Concomitant]
     Active Substance: PERINDOPRIL
     Indication: HYPERTENSION
  9. TIORFAN [Concomitant]
     Active Substance: RACECADOTRIL
     Indication: COLITIS
     Dates: start: 20201102
  10. IMODIUM [Concomitant]
     Active Substance: LOPERAMIDE HYDROCHLORIDE
     Indication: COLITIS
     Dates: start: 20201102
  11. DIFFU K [Concomitant]
     Active Substance: POTASSIUM CHLORIDE
     Indication: DIARRHOEA
  12. KARDEGIC [Concomitant]
     Active Substance: ASPIRIN DL-LYSINE
  13. LANTUS [Concomitant]
     Active Substance: INSULIN GLARGINE
     Indication: TYPE 2 DIABETES MELLITUS
  14. DIFFU K [Concomitant]
     Active Substance: POTASSIUM CHLORIDE
     Indication: COLITIS

REACTIONS (2)
  - Cancer pain [Not Recovered/Not Resolved]
  - Toxic skin eruption [Not Recovered/Not Resolved]

NARRATIVE: CASE EVENT DATE: 202012
